FAERS Safety Report 5329254-4 (Version None)
Quarter: 2007Q2

REPORT INFORMATION
  Report Type: 
  Country: None (occurrence: None)
  Receive Date: 20070518
  Receipt Date: 20070508
  Transmission Date: 20071010
  Serious: Yes (Other)
  Sender: FDA-Public Use
  Company Number: SE-ABBOTT-07P-150-0368300-00

PATIENT
  Age: 87 Year
  Sex: Male

DRUGS (2)
  1. WARFARIN [Suspect]
     Indication: CEREBROVASCULAR ACCIDENT
     Dosage: NOT REPORTED
  2. CITALOPRAM HYDROBROMIDE [Interacting]
     Indication: DRUG USE FOR UNKNOWN INDICATION

REACTIONS (3)
  - CEREBRAL HAEMORRHAGE [None]
  - DRUG INTERACTION [None]
  - INTERNATIONAL NORMALISED RATIO INCREASED [None]
